FAERS Safety Report 7432097-9 (Version None)
Quarter: 2011Q2

REPORT INFORMATION
  Report Type: 
  Country: None (occurrence: None)
  Receive Date: 20110422
  Receipt Date: 20110405
  Transmission Date: 20111010
  Serious: No
  Sender: FDA-Public Use
  Company Number: US-B.I. PHARMACEUTICALS,INC./RIDGEFIELD-2011-BP-10035BP

PATIENT
  Age: 81 Year
  Sex: Female

DRUGS (3)
  1. PRADAXA [Suspect]
     Indication: ATRIAL FIBRILLATION
     Dosage: 300 MG
     Route: 048
  2. LASIX [Concomitant]
  3. TOPROL-XL [Concomitant]

REACTIONS (2)
  - EYE DISORDER [None]
  - RETINAL HAEMORRHAGE [None]
